FAERS Safety Report 6769234-5 (Version None)
Quarter: 2010Q2

REPORT INFORMATION
  Report Type: 
  Country: None (occurrence: None)
  Receive Date: 20100615
  Receipt Date: 20100602
  Transmission Date: 20101027
  Serious: Yes (Hospitalization, Other)
  Sender: FDA-Public Use
  Company Number: PL-ELI_LILLY_AND_COMPANY-PL201006003194

PATIENT
  Sex: Female
  Weight: 50 kg

DRUGS (6)
  1. GEMCITABINE HYDROCHLORIDE [Suspect]
     Indication: NON-SMALL CELL LUNG CANCER
     Dosage: 1850 MG, TWICE EVERY 3 WEEKS
     Route: 042
     Dates: start: 20100525
  2. OTHER PHARMA COMPANY INV DRUG [Suspect]
     Indication: NON-SMALL CELL LUNG CANCER
     Dosage: 800 MG, TWICE EVERY 3 WEEKS
     Route: 042
     Dates: start: 20100525
  3. CISPLATIN [Suspect]
     Indication: NON-SMALL CELL LUNG CANCER
     Dosage: 110 MG, ONCE EVERY 3 WEEKS
     Route: 042
     Dates: start: 20100525
  4. BISOPROLOL [Concomitant]
  5. ACETYLSALICYLIC ACID [Concomitant]
  6. CODEINE [Concomitant]

REACTIONS (2)
  - FATIGUE [None]
  - PERFORMANCE STATUS DECREASED [None]
